FAERS Safety Report 10004495 (Version 1)
Quarter: 2014Q1

REPORT INFORMATION
  Report Type: Spontaneous
  Country: US (occurrence: US)
  Receive Date: 20140312
  Receipt Date: 20140312
  Transmission Date: 20141002
  Serious: No
  Sender: FDA-Public Use
  Company Number: US-009507513-2011SP050323

PATIENT
  Age: 4 Year
  Sex: Male
  Weight: 19.5 kg

DRUGS (2)
  1. CLARITIN CHEWABLE TABLETS [Suspect]
     Dosage: 5 MG, PRN
     Route: 048
     Dates: start: 201110
  2. CLARITIN CHEWABLE TABLETS [Suspect]
     Dosage: 10 MG, ONCE
     Route: 048
     Dates: start: 20111023

REACTIONS (1)
  - Overdose [Not Recovered/Not Resolved]
